FAERS Safety Report 17051886 (Version 2)
Quarter: 2020Q2

REPORT INFORMATION
  Report Type: Spontaneous
  Country: GR (occurrence: GR)
  Receive Date: 20191120
  Receipt Date: 20200501
  Transmission Date: 20200713
  Serious: Yes (Hospitalization)
  Sender: FDA-Public Use
  Company Number: NVSC2019GR040439

PATIENT
  Age: 50 Year
  Sex: Male

DRUGS (2)
  1. QUETIAPINE. [Suspect]
     Active Substance: QUETIAPINE
     Indication: PRODUCT USED FOR UNKNOWN INDICATION
     Dosage: UNK
     Route: 065
  2. LITHIUM. [Suspect]
     Active Substance: LITHIUM
     Indication: PRODUCT USED FOR UNKNOWN INDICATION
     Dosage: UNK
     Route: 065

REACTIONS (12)
  - Overdose [Unknown]
  - Inflammatory marker increased [Recovered/Resolved]
  - Oliguria [Unknown]
  - Nephritis [Unknown]
  - Abdominal pain upper [Recovered/Resolved]
  - Pyrexia [Recovered/Resolved]
  - Intentional overdose [Unknown]
  - Abdominal pain lower [Recovered/Resolved]
  - Toxicity to various agents [Unknown]
  - Septic shock [Recovered/Resolved]
  - Respiratory failure [Recovering/Resolving]
  - Acinetobacter test positive [Unknown]
